FAERS Safety Report 6412032-2 (Version None)
Quarter: 2009Q4

REPORT INFORMATION
  Report Type: 
  Country: None (occurrence: None)
  Receive Date: 20091023
  Receipt Date: 20091008
  Transmission Date: 20100525
  Serious: Yes (Other)
  Sender: FDA-Public Use
  Company Number: GB-PFIZER INC-2009280446

PATIENT
  Age: 67 Year

DRUGS (1)
  1. CHAMPIX [Suspect]
     Dosage: 1 MG, 2X/DAY
     Dates: start: 20090909

REACTIONS (2)
  - INTRAOCULAR PRESSURE INCREASED [None]
  - NIGHTMARE [None]
